FAERS Safety Report 8451897-X (Version None)
Quarter: 2012Q2

REPORT INFORMATION
  Report Type: 
  Country: None (occurrence: None)
  Receive Date: 20120620
  Receipt Date: 20120411
  Transmission Date: 20120825
  Serious: No
  Sender: FDA-Public Use
  Company Number: US-VERTEX PHARMACEUTICALS INC.-AE-2012-004241

PATIENT
  Sex: Female

DRUGS (5)
  1. BENTYL [Concomitant]
  2. RIBASPHERE [Concomitant]
     Indication: HEPATITIS C
     Dates: start: 20120306
  3. OMEPRAZOLE [Concomitant]
  4. INCIVEK [Suspect]
     Indication: HEPATITIS C
     Route: 048
     Dates: start: 20120306
  5. PEGASYS [Concomitant]
     Indication: HEPATITIS C
     Route: 058
     Dates: start: 20120306

REACTIONS (2)
  - RASH PAPULAR [None]
  - PRURITUS [None]
